FAERS Safety Report 24015843 (Version 1)
Quarter: 2024Q2

REPORT INFORMATION
  Report Type: Spontaneous
  Country: CN (occurrence: CN)
  Receive Date: 20240626
  Receipt Date: 20240626
  Transmission Date: 20240716
  Serious: Yes (Life-Threatening, Other)
  Sender: FDA-Public Use
  Company Number: None

PATIENT
  Age: 78 Year
  Sex: Male
  Weight: 60 kg

DRUGS (4)
  1. MANNITOL [Suspect]
     Active Substance: MANNITOL
     Indication: Reduction of increased intracranial pressure
     Dosage: 125 ML, Q8H
     Route: 041
     Dates: start: 20240510, end: 20240511
  2. MANNITOL [Suspect]
     Active Substance: MANNITOL
     Dosage: 125 ML, Q6H
     Route: 041
     Dates: start: 20240511, end: 20240517
  3. MANNITOL [Suspect]
     Active Substance: MANNITOL
     Dosage: 125ML, Q12H
     Route: 041
     Dates: start: 20240517
  4. FRUCTOSE\GLYCERIN\SODIUM CHLORIDE [Suspect]
     Active Substance: FRUCTOSE\GLYCERIN\SODIUM CHLORIDE
     Indication: Reduction of increased intracranial pressure
     Dosage: 250 ML, Q12H
     Route: 041
     Dates: start: 20240510, end: 20240518

REACTIONS (1)
  - Hypernatraemia [Recovering/Resolving]

NARRATIVE: CASE EVENT DATE: 20240517
